FAERS Safety Report 5013510-3 (Version None)
Quarter: 2006Q2

REPORT INFORMATION
  Report Type: 
  Country: None (occurrence: None)
  Receive Date: 20060525
  Receipt Date: 20060525
  Transmission Date: 20061013
  Serious: No
  Sender: FDA-Public Use
  Company Number: None

PATIENT

DRUGS (2)
  1. NEUTRA-PHOS K K 556 MG, PHOS 250 MG ZENITH-GOLDLINE 17314-9313-2 [Suspect]
  2. PHOS-NAK NA 160 MG, K 280 MG, PHOS 250 MG CYPRESS 60258-006-01 [Suspect]

REACTIONS (1)
  - CIRCUMSTANCE OR INFORMATION CAPABLE OF LEADING TO MEDICATION ERROR [None]
